FAERS Safety Report 10927696 (Version 5)
Quarter: 2015Q4

REPORT INFORMATION
  Report Type: Report from Study
  Country: US (occurrence: US)
  Receive Date: 20150319
  Receipt Date: 20151229
  Transmission Date: 20160304
  Serious: No
  Sender: FDA-Public Use
  Company Number: US-AMGEN-USASL2015024875

PATIENT
  Age: 38 Year
  Sex: Female

DRUGS (2)
  1. ENBREL [Suspect]
     Active Substance: ETANERCEPT
     Indication: PSORIATIC ARTHROPATHY
     Dosage: 50 MG, WEEKLY
     Route: 065
     Dates: start: 20141027
  2. ENBREL [Suspect]
     Active Substance: ETANERCEPT
     Indication: PSORIASIS
     Dosage: UNK
     Route: 065

REACTIONS (14)
  - Malaise [Unknown]
  - Aphonia [Unknown]
  - Immune system disorder [Unknown]
  - Respiratory tract congestion [Unknown]
  - Injection site pain [Unknown]
  - Cough [Recovered/Resolved]
  - Gallbladder disorder [Unknown]
  - Headache [Unknown]
  - Injection site bruising [Unknown]
  - Skin discolouration [Unknown]
  - Ear discomfort [Recovered/Resolved]
  - Psoriasis [Unknown]
  - Hypersensitivity [Recovered/Resolved]
  - Therapeutic response decreased [Unknown]

NARRATIVE: CASE EVENT DATE: 2015
